FAERS Safety Report 22895852 (Version 2)
Quarter: 2023Q4

REPORT INFORMATION
  Report Type: Spontaneous
  Country: US (occurrence: US)
  Receive Date: 20230901
  Receipt Date: 20231103
  Transmission Date: 20240110
  Serious: No
  Sender: FDA-Public Use
  Company Number: US-PFIZER INC-202300289759

PATIENT
  Age: 84 Year
  Sex: Female

DRUGS (1)
  1. IBRANCE [Suspect]
     Active Substance: PALBOCICLIB
     Dosage: 1 TABLET DAILY WITH FOOD FOR 21 DAYS THEN OFF FOR 7 DAYS
     Dates: start: 20230323

REACTIONS (1)
  - Fatigue [Not Recovered/Not Resolved]
